FAERS Safety Report 6901142-9 (Version None)
Quarter: 2010Q3

REPORT INFORMATION
  Report Type: 
  Country: None (occurrence: None)
  Receive Date: 20100803
  Receipt Date: 20100720
  Transmission Date: 20110219
  Serious: Yes (Hospitalization, Other)
  Sender: FDA-Public Use
  Company Number: US-BAYER-200942467NA

PATIENT
  Age: 18 Year
  Sex: Female
  Weight: 113 kg

DRUGS (6)
  1. YASMIN [Suspect]
     Indication: POLYCYSTIC OVARIES
     Route: 048
     Dates: start: 20060501, end: 20071101
  2. SYNTHROID [Concomitant]
     Indication: HYPOTHYROIDISM
     Route: 065
     Dates: start: 20070101
  3. METFORMIN HCL [Concomitant]
     Dates: start: 20080101
  4. COUMADIN [Concomitant]
     Route: 065
     Dates: start: 20071101, end: 20080601
  5. LOVENOX [Concomitant]
     Route: 065
     Dates: start: 20071101, end: 20080601
  6. ASPIRIN [Concomitant]
     Route: 048
     Dates: start: 20080630

REACTIONS (6)
  - CHOLELITHIASIS [None]
  - DEEP VEIN THROMBOSIS [None]
  - HYPERCOAGULATION [None]
  - OEDEMA PERIPHERAL [None]
  - PAIN IN EXTREMITY [None]
  - PULMONARY EMBOLISM [None]
